FAERS Safety Report 10705944 (Version 3)
Quarter: 2015Q2

REPORT INFORMATION
  Report Type: Spontaneous
  Country: IT (occurrence: IT)
  Receive Date: 20150113
  Receipt Date: 20150402
  Transmission Date: 20150821
  Serious: Yes (Other)
  Sender: FDA-Public Use
  Company Number: IT-009507513-1412ITA001290

PATIENT
  Age: 51 Year
  Sex: Male
  Weight: 61 kg

DRUGS (3)
  1. VICTRELIS [Suspect]
     Active Substance: BOCEPREVIR
     Dosage: 2400 MG DAILY
     Route: 048
     Dates: start: 20140904, end: 20140925
  2. RIBAVIRIN. [Suspect]
     Active Substance: RIBAVIRIN
     Dosage: 800 MG DAILY
     Route: 048
     Dates: start: 20140801, end: 20140925
  3. PEGASYS [Suspect]
     Active Substance: PEGINTERFERON ALFA-2A
     Dosage: UNK, QW
     Route: 058
     Dates: start: 20140801, end: 20140925

REACTIONS (1)
  - Thrombocytopenia [Recovered/Resolved]

NARRATIVE: CASE EVENT DATE: 20140925
